FAERS Safety Report 12364483 (Version 1)
Quarter: 2016Q2

REPORT INFORMATION
  Report Type: Spontaneous
  Country: US (occurrence: US)
  Receive Date: 20160512
  Receipt Date: 20160512
  Transmission Date: 20160815
  Serious: No
  Sender: FDA-Public Use
  Company Number: US-ACTELION-A-US2016-135801

PATIENT
  Age: 67 Year
  Sex: Male

DRUGS (3)
  1. VALCHLOR [Suspect]
     Active Substance: MECHLORETHAMINE
     Indication: MYCOSIS FUNGOIDES
     Dosage: UNK
     Route: 061
     Dates: start: 20160414
  2. CLOBETASOL [Concomitant]
     Active Substance: CLOBETASOL
     Dosage: UNK
  3. SARNA NOS [Concomitant]
     Active Substance: CAMPHOR (NATURAL)\MENTHOL OR PRAMOXINE HYDROCHLORIDE
     Dosage: UNK

REACTIONS (1)
  - Application site irritation [Unknown]
